FAERS Safety Report 4893730-9 (Version None)
Quarter: 2006Q1

REPORT INFORMATION
  Report Type: 
  Country: None (occurrence: None)
  Receive Date: 20060127
  Receipt Date: 20060123
  Transmission Date: 20060701
  Serious: Yes (Other)
  Sender: FDA-Public Use
  Company Number: GB-GLAXOSMITHKLINE-B0407534A

PATIENT
  Sex: Female

DRUGS (2)
  1. ZYBAN [Suspect]
     Dosage: 150MG TWICE PER DAY
     Route: 048
     Dates: start: 20060106
  2. RAMIPRIL [Concomitant]
     Route: 065

REACTIONS (6)
  - ABNORMAL SENSATION IN EYE [None]
  - CIRCULATORY COLLAPSE [None]
  - DISORIENTATION [None]
  - HEADACHE [None]
  - HYPERVIGILANCE [None]
  - MYDRIASIS [None]
